FAERS Safety Report 7233796-4 (Version None)
Quarter: 2011Q1

REPORT INFORMATION
  Report Type: 
  Country: None (occurrence: None)
  Receive Date: 20110119
  Receipt Date: 20100517
  Transmission Date: 20110831
  Serious: No
  Sender: FDA-Public Use
  Company Number: US-TEVA-233385USA

PATIENT
  Sex: Male

DRUGS (3)
  1. CIPROFLOXACIN [Concomitant]
  2. PREDNISONE [Concomitant]
  3. COPAXONE [Suspect]
     Indication: MULTIPLE SCLEROSIS
     Route: 058
     Dates: start: 20090101, end: 20100427

REACTIONS (2)
  - LYME DISEASE [None]
  - URTICARIA [None]
